FAERS Safety Report 5431278-3 (Version None)
Quarter: 2007Q3

REPORT INFORMATION
  Report Type: 
  Country: None (occurrence: None)
  Receive Date: 20070830
  Receipt Date: 20070828
  Transmission Date: 20080115
  Serious: Yes (Hospitalization)
  Sender: FDA-Public Use
  Company Number: US-BRISTOL-MYERS SQUIBB COMPANY-13882055

PATIENT
  Age: 41 Year
  Sex: Female

DRUGS (20)
  1. CETUXIMAB [Suspect]
     Indication: COLORECTAL CANCER METASTATIC
     Dosage: ON DAYS 1+8
     Route: 042
     Dates: start: 20070808
  2. DASATINIB [Suspect]
     Indication: COLORECTAL CANCER METASTATIC
     Route: 048
     Dates: start: 20070808
  3. LEUCOVORIN CALCIUM [Suspect]
     Indication: COLORECTAL CANCER METASTATIC
     Dosage: ON DAY 1
     Route: 042
     Dates: start: 20070808
  4. 5FU [Suspect]
     Indication: COLORECTAL CANCER METASTATIC
     Dosage: DOSE- 400MG/M*2 ON DAY 1. 2400MG/M*2 OVER 46 HOURS.
     Route: 042
     Dates: start: 20070808
  5. OXALIPLATIN [Suspect]
     Indication: COLORECTAL CANCER METASTATIC
     Dosage: DOSE- 85 MG/M*2 ON DAY 1.
     Route: 042
     Dates: start: 20070808
  6. AMBIEN [Concomitant]
     Indication: INSOMNIA
     Dosage: HS PRN
     Route: 048
  7. BONIVA [Concomitant]
     Indication: OSTEOPOROSIS
     Route: 048
  8. DEXAMETHASONE 0.5MG TAB [Concomitant]
     Route: 048
  9. LEVOTHYROXINE SODIUM [Concomitant]
     Indication: THYROID DISORDER
     Route: 048
  10. FLORASTOR [Concomitant]
     Route: 048
  11. METOCLOPRAMIDE HCL [Concomitant]
     Indication: NAUSEA
     Route: 048
  12. MIRALAX [Concomitant]
     Indication: CONSTIPATION
     Route: 048
  13. NEXIUM [Concomitant]
     Indication: HYPERCHLORHYDRIA
     Route: 048
  14. OXYCODONE HCL [Concomitant]
     Indication: PAIN
     Dosage: 120 MG ORAL EVERY 12HOURS AND EVERY 2HOURS. 3 TABLETS OF 40MG EVERY 12 HOURS
     Route: 048
  15. PAXIL [Concomitant]
     Indication: DEPRESSION
     Route: 048
  16. SENOKOT [Concomitant]
     Indication: CONSTIPATION
     Route: 048
  17. VALTREX [Concomitant]
     Route: 048
  18. XANAX [Concomitant]
     Indication: ANXIETY
     Route: 048
  19. ZOFRAN [Concomitant]
     Indication: NAUSEA
     Route: 048
  20. ZOFRAN [Concomitant]
     Indication: VOMITING
     Route: 048

REACTIONS (4)
  - ABDOMINAL PAIN [None]
  - HYPOMAGNESAEMIA [None]
  - NAUSEA [None]
  - VOMITING [None]
